FAERS Safety Report 5251887-4 (Version None)
Quarter: 2007Q1

REPORT INFORMATION
  Report Type: 
  Country: None (occurrence: None)
  Receive Date: 20070223
  Receipt Date: 20070209
  Transmission Date: 20070707
  Serious: Yes (Life-Threatening)
  Sender: FDA-Public Use
  Company Number: ACO_0319_2007

PATIENT
  Age: 38 Year
  Sex: Female
  Weight: 42 kg

DRUGS (2)
  1. SIRDALUD RETARD [Suspect]
     Indication: HYPERTONIA
     Dosage: 12 MG QDAY PO
     Route: 048
     Dates: start: 20061027, end: 20070116
  2. LACTULOSE [Concomitant]

REACTIONS (3)
  - ALANINE AMINOTRANSFERASE INCREASED [None]
  - DEPRESSED LEVEL OF CONSCIOUSNESS [None]
  - HEPATIC INFECTION [None]
